FAERS Safety Report 5882678-9 (Version None)
Quarter: 2008Q3

REPORT INFORMATION
  Report Type: 
  Country: None (occurrence: None)
  Receive Date: 20080913
  Receipt Date: 20080811
  Transmission Date: 20090109
  Serious: No
  Sender: FDA-Public Use
  Company Number: US-ABBOTT-08P-163-0470473-00

PATIENT
  Sex: Male
  Weight: 81.72 kg

DRUGS (4)
  1. HUMIRA [Suspect]
     Indication: RHEUMATOID ARTHRITIS
     Route: 058
     Dates: start: 20070101, end: 20080501
  2. HUMIRA [Suspect]
     Indication: UVEITIS
     Route: 058
     Dates: start: 20080815
  3. STEROID EYE DROPS [Concomitant]
     Indication: UVEITIS
  4. DIALATING EYE DROPS [Concomitant]
     Indication: UVEITIS

REACTIONS (10)
  - BLINDNESS UNILATERAL [None]
  - EYE SWELLING [None]
  - INSOMNIA [None]
  - LACRIMATION INCREASED [None]
  - MOVEMENT DISORDER [None]
  - MUSCLE SPASMS [None]
  - MUSCLE TIGHTNESS [None]
  - MUSCULOSKELETAL STIFFNESS [None]
  - OCULAR HYPERAEMIA [None]
  - PAIN [None]
